FAERS Safety Report 11266127 (Version 2)
Quarter: 2015Q3

REPORT INFORMATION
  Report Type: Spontaneous
  Country: US (occurrence: US)
  Receive Date: 20150713
  Receipt Date: 20150720
  Transmission Date: 20151125
  Serious: Yes (Hospitalization, Other)
  Sender: FDA-Public Use
  Company Number: US-UCBSA-2015022018

PATIENT
  Age: 58 Year
  Sex: Male
  Weight: 89.3 kg

DRUGS (10)
  1. PRILOSEC [Concomitant]
     Active Substance: OMEPRAZOLE MAGNESIUM
     Indication: DYSPEPSIA
     Dosage: 20 MG, 2X/DAY (BID), STARTED 1-2 YEARS
     Route: 048
  2. LOVENOX [Concomitant]
     Active Substance: ENOXAPARIN SODIUM
     Indication: PULMONARY THROMBOSIS
     Dosage: UNK
     Dates: start: 201506, end: 201506
  3. VIMPAT [Suspect]
     Active Substance: LACOSAMIDE
     Indication: SEIZURE
     Dosage: 150 MG, 2X/DAY (BID), STARTED 2 OR 3 YEARS AGO
     Route: 048
  4. LIDOCAINE. [Concomitant]
     Active Substance: LIDOCAINE
     Indication: OROPHARYNGEAL PAIN
     Dosage: 1 MG, 2X/DAY (BID)
  5. CARAFATE [Concomitant]
     Active Substance: SUCRALFATE
     Indication: DYSPEPSIA
     Dosage: UNK, AS NEEDED (PRN)
     Route: 048
  6. WARFARIN [Concomitant]
     Active Substance: WARFARIN
     Indication: THROMBOSIS
     Dosage: 5 MG, ONCE DAILY (QD) QHS
     Route: 048
     Dates: start: 201506
  7. KEPPRA XR [Suspect]
     Active Substance: LEVETIRACETAM
     Indication: SEIZURE
     Dosage: 1500 MG, 2X/DAY (BID)
     Dates: start: 201010
  8. PERCOCET [Concomitant]
     Active Substance: ACETAMINOPHEN\OXYCODONE HYDROCHLORIDE
     Indication: PRODUCT USED FOR UNKNOWN INDICATION
     Dosage: UNK
  9. PHENERGAN [Concomitant]
     Active Substance: PROMETHAZINE HYDROCHLORIDE
     Indication: NAUSEA
     Dosage: UNK MG, AS NEEDED (PRN)
     Route: 048
  10. NEURONTIN [Concomitant]
     Active Substance: GABAPENTIN
     Indication: NEUROPATHY PERIPHERAL
     Dosage: 300 MG, 3X/DAY (TID)
     Route: 048
     Dates: start: 2011

REACTIONS (11)
  - Prostate cancer [Unknown]
  - Urinary incontinence [Recovered/Resolved]
  - Neuropathy peripheral [Not Recovered/Not Resolved]
  - Lung carcinoma cell type unspecified recurrent [Unknown]
  - Pulmonary thrombosis [Unknown]
  - International normalised ratio fluctuation [Not Recovered/Not Resolved]
  - Seizure [Not Recovered/Not Resolved]
  - Pain in extremity [Recovered/Resolved]
  - Generalised tonic-clonic seizure [Recovered/Resolved]
  - Chest pain [Recovered/Resolved]
  - Off label use [Unknown]

NARRATIVE: CASE EVENT DATE: 201010
